FAERS Safety Report 5246439-6 (Version None)
Quarter: 2007Q1

REPORT INFORMATION
  Report Type: 
  Country: None (occurrence: None)
  Receive Date: 20070222
  Receipt Date: 20070222
  Transmission Date: 20070707
  Serious: Yes (Other)
  Sender: FDA-Public Use
  Company Number: None

PATIENT
  Sex: Female

DRUGS (1)
  1. PURALUBE OINTMENT [Suspect]
     Dosage: UNKNOWN   UNKNOWN  OTIC
     Route: 001
     Dates: start: 20070206

REACTIONS (1)
  - DRY EYE [None]
